FAERS Safety Report 5879549-0 (Version None)
Quarter: 2008Q3

REPORT INFORMATION
  Report Type: 
  Country: None (occurrence: None)
  Receive Date: 20080911
  Receipt Date: 20080911
  Transmission Date: 20090109
  Serious: Yes (Hospitalization)
  Sender: FDA-Public Use
  Company Number: None

PATIENT
  Age: 27 Year
  Sex: Female
  Weight: 113.3993 kg

DRUGS (1)
  1. NUVARING [Suspect]
     Indication: CONTRACEPTION
     Dosage: 0.120MG/0.015MG PER DAY VAG
     Route: 067
     Dates: start: 20080727, end: 20080817

REACTIONS (2)
  - PULMONARY EMBOLISM [None]
  - THROMBOSIS [None]
